FAERS Safety Report 9826211 (Version 1)
Quarter: 2014Q1

REPORT INFORMATION
  Report Type: Spontaneous
  Country: US (occurrence: None)
  Receive Date: 20140115
  Receipt Date: 20140115
  Transmission Date: 20141002
  Serious: Yes (Hospitalization, Other)
  Sender: FDA-Public Use
  Company Number: 2013-US-004654

PATIENT
  Age: 28 Year
  Sex: Female

DRUGS (19)
  1. XYREM (SODIUM OXYBATE) ORAL SOLUTION, 500MG/ML [Suspect]
     Indication: NARCOLEPSY
     Route: 048
     Dates: start: 201010
  2. GAMMA-AMINOBUTYRIC ACID (GAMMA-AMINOBUTYRIC ACID) [Suspect]
     Indication: PRODUCT USED FOR UNKNOWN INDICATION
  3. XANAX (ALPRAZOLAM) TABLET [Suspect]
     Indication: ANXIETY
     Dosage: TID AS NEEDED
     Route: 048
  4. BUSPAR (BUSPIRONE HYDROCHLORIDE) TABLET [Suspect]
     Indication: PRODUCT USED FOR UNKNOWN INDICATION
  5. CELEXA (CITALOPRAM HYDROBROMIDE) TABLET [Suspect]
     Indication: PRODUCT USED FOR UNKNOWN INDICATION
  6. STRATTERA (ATOMOXETINE HYDROCHLORIDE) CAPSULE [Suspect]
     Indication: NARCOLEPSY
  7. INDERAL (PROPRANOLOL HYDROCHLORIDE) [Concomitant]
  8. ALBUTEROL (SALBUTAMOL SULFATE) [Concomitant]
  9. VOLTAREN (DICLOFENAC SODIUM) [Concomitant]
  10. LEVOTHYROXINE SODIUM (LEVOTHYROXINE SODIUM) [Concomitant]
  11. LISINOPRIL [Concomitant]
  12. MAGNESIUM [Concomitant]
  13. OMEGA-3 (DOCOSAHEXAENOIC ACID, EICOSAPENTAENOIC ACID) [Concomitant]
  14. PRILOSEC (OMEPRAZOLE) [Concomitant]
  15. VALTREX (VALACICLOVIR HYDROCHLORIDE) [Concomitant]
  16. CHOLECALCIFEROL (COLECALCIFEROL) [Concomitant]
  17. CALCIUM CARBONATE [Concomitant]
  18. MULTIVITAMINS (ASCORBIC ACID, ERGOCALCIFEROL, FOLIC ACID, NICOTINAMIDE, PANTHENOL, RETINOL, RIBOFLAVIN, THIAMINE HYDROCHLORIDE) [Concomitant]
  19. MIRALAX (MACROGOL) [Concomitant]

REACTIONS (17)
  - Confusional state [None]
  - Delirium [None]
  - Paranoia [None]
  - Disturbance in attention [None]
  - Intentional overdose [None]
  - Toxicity to various agents [None]
  - Drug withdrawal syndrome [None]
  - Anxiety [None]
  - Inappropriate schedule of drug administration [None]
  - Palpitations [None]
  - Sinus tachycardia [None]
  - Insomnia [None]
  - Psychiatric symptom [None]
  - Electrocardiogram T wave abnormal [None]
  - Fall [None]
  - Injury [None]
  - Hallucinations, mixed [None]
